FAERS Safety Report 13918178 (Version 2)
Quarter: 2018Q4

REPORT INFORMATION
  Report Type: Report from Study
  Country: US (occurrence: US)
  Receive Date: 20170829
  Receipt Date: 20181005
  Transmission Date: 20190204
  Serious: Yes (Hospitalization, Other)
  Sender: FDA-Public Use
  Company Number: US-SA-2017SA007649

PATIENT
  Age: 54 Year
  Sex: Female

DRUGS (4)
  1. AGALSIDASE BETA [Suspect]
     Active Substance: AGALSIDASE BETA
     Dosage: 55 MG,QOW
     Route: 041
     Dates: start: 20120425, end: 20161220
  2. AGALSIDASE BETA [Suspect]
     Active Substance: AGALSIDASE BETA
     Dosage: 55 MG,QOW
     Route: 041
     Dates: start: 20120425, end: 20161220
  3. AGALSIDASE BETA [Suspect]
     Active Substance: AGALSIDASE BETA
     Dosage: 55 MG,QOW
     Route: 041
     Dates: start: 20170112
  4. AGALSIDASE BETA [Suspect]
     Active Substance: AGALSIDASE BETA
     Indication: FABRY^S DISEASE
     Dosage: 55 MG,QOW
     Route: 041
     Dates: start: 20120425, end: 20161220

REACTIONS (10)
  - Osteoporosis [Unknown]
  - Pain [Unknown]
  - Malaise [Not Recovered/Not Resolved]
  - Chronic obstructive pulmonary disease [Unknown]
  - Myocardial infarction [Recovering/Resolving]
  - Fall [Recovering/Resolving]
  - Neck pain [Recovering/Resolving]
  - Back disorder [Unknown]
  - Pyrexia [Recovered/Resolved]
  - Arthritis [Unknown]

NARRATIVE: CASE EVENT DATE: 2017
